FAERS Safety Report 8928399 (Version 2)
Quarter: 2012Q4

REPORT INFORMATION
  Report Type: Report from Study
  Country: JP (occurrence: JP)
  Receive Date: 20121128
  Receipt Date: 20121221
  Transmission Date: 20130627
  Serious: Yes (Hospitalization, Other)
  Sender: FDA-Public Use
  Company Number: JP-009507513-2012SP022687

PATIENT
  Age: 82 Year
  Sex: Female
  Weight: 46 kg

DRUGS (13)
  1. DIAZOXIDE [Suspect]
     Indication: HYPOGLYCAEMIA
     Dosage: 50 mg,
     Route: 048
     Dates: start: 20120327, end: 20120329
  2. DIAZOXIDE [Suspect]
     Dosage: 75 mg, tid
     Route: 048
     Dates: start: 20120330, end: 20120402
  3. DIAZOXIDE [Suspect]
     Dosage: 50 mg, tid
     Route: 048
     Dates: start: 20120403, end: 20120403
  4. HALFDIGOXIN [Concomitant]
     Indication: ATRIAL FIBRILLATION
     Dosage: 0.125 mg, divided dose frequency uncertain
     Route: 048
  5. WARFARIN POTASSIUM [Concomitant]
     Indication: ATRIAL FIBRILLATION
     Dosage: 1.5 mg, divided dose frequency uncertain, Formulation:POR
     Route: 048
     Dates: start: 20071217, end: 20120325
  6. WARFARIN POTASSIUM [Concomitant]
     Dosage: 0.5 mg, divided dose frequency uncertain, Formulation: POR
     Route: 048
     Dates: start: 20120326
  7. MAINTATE [Concomitant]
     Indication: HYPERTENSION
     Dosage: 1.25 mg, divided dose frequency uncertain
     Route: 048
  8. FUROSEMIDE [Concomitant]
     Indication: CARDIAC FAILURE CONGESTIVE
     Dosage: 10 mg, divided dose frequency uncertain, Formulation: POR
     Route: 048
  9. TAKEPRON [Concomitant]
     Indication: GASTROOESOPHAGEAL REFLUX DISEASE
     Dosage: 15 mg, divided dose frequency uncertain
     Route: 048
     Dates: start: 20120319
  10. MAGMITT [Concomitant]
     Indication: CONSTIPATION
     Dosage: 990 mg, Divided dose frequency is uncertain
     Route: 048
  11. GASMOTIN [Concomitant]
     Indication: GASTRITIS
     Dosage: 15 mg, Divided doses, frequency is uncertain, Formulation: POR
     Route: 048
  12. FAMOSTAGINE D [Concomitant]
     Indication: HYPOGLYCAEMIA
     Dosage: 20 mg, divided dose frequency is uncertain
     Route: 048
     Dates: start: 20071217
  13. VESICARE [Concomitant]
     Indication: HYPOGLYCAEMIA
     Dosage: 5 mg, divided dose frequency is uncertain
     Route: 048
     Dates: start: 20071217

REACTIONS (2)
  - Renal impairment [Recovered/Resolved]
  - Vomiting [Recovered/Resolved]
